FAERS Safety Report 7979056-5 (Version None)
Quarter: 2011Q4

REPORT INFORMATION
  Report Type: 
  Country: None (occurrence: None)
  Receive Date: 20111214
  Receipt Date: 20111212
  Transmission Date: 20120403
  Serious: No
  Sender: FDA-Public Use
  Company Number: US-PFIZER INC-2011303233

PATIENT
  Sex: Female
  Weight: 72.562 kg

DRUGS (7)
  1. HYDROCODONE BITARTRATE [Suspect]
     Indication: ARTHRITIS
     Dosage: UNK
     Dates: start: 20110101, end: 20110101
  2. CELEBREX [Suspect]
     Indication: ARTHRITIS
     Dosage: 100 MG, DAILY
     Route: 048
     Dates: start: 20111121
  3. ACETYLSALICYLIC ACID [Concomitant]
  4. EXCEDRIN (MIGRAINE) [Concomitant]
     Indication: ARTHRITIS
     Dosage: 200 MG, AS NEEDED
  5. DARVOCET [Suspect]
     Indication: ARTHRITIS
     Dosage: UNK
     Dates: start: 20110101, end: 20110101
  6. CYMBALTA [Suspect]
     Indication: ARTHRITIS
     Dosage: UNK
     Dates: start: 20110101, end: 20110101
  7. ACETAMINOPHEN [Concomitant]
     Dosage: UNK

REACTIONS (4)
  - DRUG INEFFECTIVE [None]
  - DRUG INTOLERANCE [None]
  - ABDOMINAL DISCOMFORT [None]
  - NAUSEA [None]
